FAERS Safety Report 15643004 (Version 1)
Quarter: 2018Q4

REPORT INFORMATION
  Report Type: Spontaneous
  Country: US (occurrence: US)
  Receive Date: 20181121
  Receipt Date: 20181121
  Transmission Date: 20190205
  Serious: Yes (Other)
  Sender: FDA-Public Use
  Company Number: US-TEVA-2018-US-977820

PATIENT
  Sex: Female

DRUGS (1)
  1. PREDNISONE. [Suspect]
     Active Substance: PREDNISONE
     Indication: CONGENITAL APLASTIC ANAEMIA
     Dosage: 2 MG/KG DAILY;
     Route: 048

REACTIONS (2)
  - Therapy non-responder [Unknown]
  - Drug ineffective [Unknown]
